FAERS Safety Report 24073105 (Version 1)
Quarter: 2024Q3

REPORT INFORMATION
  Report Type: Spontaneous
  Country: GB (occurrence: GB)
  Receive Date: 20240710
  Receipt Date: 20240710
  Transmission Date: 20241017
  Serious: Yes (Other)
  Sender: PFIZER
  Company Number: None

PATIENT
  Sex: Female

DRUGS (1)
  1. LORLATINIB [Suspect]
     Active Substance: LORLATINIB
     Dosage: UNK

REACTIONS (5)
  - Hallucination [Unknown]
  - Fatigue [Unknown]
  - Mobility decreased [Unknown]
  - Localised oedema [Unknown]
  - Oedema peripheral [Unknown]
